FAERS Safety Report 17275834 (Version 1)
Quarter: 2020Q1

REPORT INFORMATION
  Report Type: Spontaneous
  Country: US (occurrence: US)
  Receive Date: 20200116
  Receipt Date: 20200116
  Transmission Date: 20200409
  Serious: No
  Sender: FDA-Public Use
  Company Number: US-BEH-2020111370

PATIENT
  Age: 59 Year
  Sex: Male

DRUGS (1)
  1. PRIVIGEN [Suspect]
     Active Substance: HUMAN IMMUNOGLOBULIN G
     Indication: CHRONIC INFLAMMATORY DEMYELINATING POLYRADICULONEUROPATHY
     Dosage: 40 GRAM, QMT (EVERY 4 WEEKS)
     Route: 042
     Dates: start: 201912

REACTIONS (4)
  - Dyspnoea [Unknown]
  - Pharyngitis [Unknown]
  - Insomnia [Unknown]
  - Headache [Unknown]
